FAERS Safety Report 7765326-2 (Version None)
Quarter: 2011Q3

REPORT INFORMATION
  Report Type: 
  Country: None (occurrence: None)
  Receive Date: 20110921
  Receipt Date: 20110915
  Transmission Date: 20111222
  Serious: Yes (Hospitalization)
  Sender: FDA-Public Use
  Company Number: FR-UCBSA-024734

PATIENT
  Age: 30 Year
  Sex: Female
  Weight: 43 kg

DRUGS (3)
  1. NO CONCOMITANT MEDICATION [Concomitant]
  2. VIMPAT [Suspect]
     Route: 048
     Dates: start: 20101223, end: 20101201
  3. VIMPAT [Suspect]
     Indication: EPILEPSY
     Route: 048
     Dates: start: 20101201, end: 20101223

REACTIONS (9)
  - ANXIETY [None]
  - DEPRESSION [None]
  - FALL [None]
  - VOMITING [None]
  - MOVEMENT DISORDER [None]
  - DIPLOPIA [None]
  - DECREASED APPETITE [None]
  - PARAESTHESIA [None]
  - DIZZINESS [None]
